FAERS Safety Report 12138594 (Version 3)
Quarter: 2016Q1

REPORT INFORMATION
  Report Type: Spontaneous
  Country: JP (occurrence: JP)
  Receive Date: 20160302
  Receipt Date: 20160323
  Transmission Date: 20160526
  Serious: Yes (Life-Threatening, Hospitalization)
  Sender: FDA-Public Use
  Company Number: JP-ASTRAZENECA-2016SE20308

PATIENT
  Age: 30800 Day
  Sex: Female
  Weight: 35 kg

DRUGS (12)
  1. ALDACTONE A [Concomitant]
     Active Substance: SPIRONOLACTONE
     Route: 048
  2. OLMETEC [Concomitant]
     Active Substance: OLMESARTAN MEDOXOMIL
     Dosage: AFTER BREAKFAST, 20 MG, EVERY DAY
     Route: 048
  3. COSOPT [Concomitant]
     Active Substance: DORZOLAMIDE HYDROCHLORIDE\TIMOLOL MALEATE
     Route: 047
  4. FORXIGA [Suspect]
     Active Substance: DAPAGLIFLOZIN
     Indication: TYPE 2 DIABETES MELLITUS
     Route: 048
     Dates: start: 20160216, end: 20160222
  5. LAMISIL [Concomitant]
     Active Substance: TERBINAFINE HYDROCHLORIDE
     Route: 062
  6. LASIX [Concomitant]
     Active Substance: FUROSEMIDE
     Dosage: AFTER BREAKFAST, 10 MG, EVERY DAY
     Route: 048
  7. ARTIST [Concomitant]
     Active Substance: CARVEDILOL
     Dosage: BEFORE BEDTIME, 10 MG, EVERY DAY
     Route: 048
  8. MYDRIN-M [Concomitant]
     Route: 047
  9. MEILAX [Concomitant]
     Active Substance: ETHYL LOFLAZEPATE
     Dosage: 0.05 G, AFTER EVENING MEAL, EVERY DAY
     Route: 048
  10. TRAZODONE [Concomitant]
     Active Substance: TRAZODONE HYDROCHLORIDE
     Dosage: AFTER EVENING MEAL AND BEFORE BEDTIME, 25 MG , TWO TIMES A DAY
     Route: 048
  11. SERENACE [Concomitant]
     Active Substance: HALOPERIDOL
     Dosage: 0.075 G, AFTER EVENING MEAL, EVERY DAY
     Route: 048
  12. TAKEPRON [Concomitant]
     Active Substance: LANSOPRAZOLE
     Dosage: BEFORE BEDTIME, 15 MG, EVERY DAY
     Route: 048

REACTIONS (5)
  - Dehydration [Unknown]
  - Pyrexia [Unknown]
  - Gastroenteritis [Unknown]
  - Hyperosmolar hyperglycaemic state [Recovering/Resolving]
  - Bronchitis [Unknown]

NARRATIVE: CASE EVENT DATE: 20160217
